FAERS Safety Report 6921358-5 (Version None)
Quarter: 2010Q3

REPORT INFORMATION
  Report Type: 
  Country: None (occurrence: None)
  Receive Date: 20100805
  Receipt Date: 20100331
  Transmission Date: 20110219
  Serious: No
  Sender: FDA-Public Use
  Company Number: US-001789

PATIENT
  Sex: Male

DRUGS (5)
  1. DEGARELIX (240 MG, 80 MG, 80 MG, 80 MG, 80 MG) [Suspect]
     Indication: PROSTATE CANCER
     Dosage: SEE IMAGE
     Route: 058
     Dates: start: 20090821, end: 20090821
  2. DEGARELIX (240 MG, 80 MG, 80 MG, 80 MG, 80 MG) [Suspect]
     Indication: PROSTATE CANCER
     Dosage: SEE IMAGE
     Route: 058
     Dates: start: 20090922, end: 20090922
  3. DEGARELIX (240 MG, 80 MG, 80 MG, 80 MG, 80 MG) [Suspect]
     Indication: PROSTATE CANCER
     Dosage: SEE IMAGE
     Route: 058
     Dates: start: 20091023, end: 20091023
  4. DEGARELIX (240 MG, 80 MG, 80 MG, 80 MG, 80 MG) [Suspect]
     Indication: PROSTATE CANCER
     Dosage: SEE IMAGE
     Route: 058
     Dates: start: 20091120, end: 20091120
  5. DEGARELIX (240 MG, 80 MG, 80 MG, 80 MG, 80 MG) [Suspect]
     Indication: PROSTATE CANCER
     Dosage: SEE IMAGE
     Route: 058
     Dates: start: 20091218, end: 20091218

REACTIONS (2)
  - MUSCULOSKELETAL PAIN [None]
  - PAIN [None]
